FAERS Safety Report 8796384 (Version 2)
Quarter: 2013Q1

REPORT INFORMATION
  Report Type: Report from Study
  Country: US (occurrence: US)
  Receive Date: 20120919
  Receipt Date: 20130118
  Transmission Date: 20140127
  Serious: Yes (Hospitalization)
  Sender: FDA-Public Use
  Company Number: US-PFIZER INC-2012086690

PATIENT
  Age: 27 Year
  Sex: Female
  Weight: 53.6 kg

DRUGS (1)
  1. CRIZOTINIB [Suspect]
     Indication: LUNG CANCER METASTATIC
     Dosage: 250 MG, 2X/DAY
     Route: 048
     Dates: start: 20120203, end: 20120403

REACTIONS (1)
  - Febrile neutropenia [Recovered/Resolved]
